FAERS Safety Report 18742711 (Version 6)
Quarter: 2021Q3

REPORT INFORMATION
  Report Type: Spontaneous
  Country: AU (occurrence: AU)
  Receive Date: 20210114
  Receipt Date: 20210803
  Transmission Date: 20211014
  Serious: Yes (Hospitalization, Other)
  Sender: FDA-Public Use
  Company Number: AU-GILEAD-2021-0512560

PATIENT
  Age: 50 Year
  Sex: Female

DRUGS (40)
  1. FLOLAN [Suspect]
     Active Substance: EPOPROSTENOL SODIUM
     Dosage: 20 NG (20 NANNOGRAMS/KG/MIN)
     Route: 042
  2. NIZATIDINE TABLET [Concomitant]
     Indication: PRODUCT USED FOR UNKNOWN INDICATION
     Dosage: UNK
  3. AMBRISENTAN [Suspect]
     Active Substance: AMBRISENTAN
     Indication: PULMONARY ARTERIAL HYPERTENSION
     Dosage: 10 MG, QD
     Route: 065
  4. DOXYCILLINE [DOXYCYCLINE HYDROCHLORIDE] [Suspect]
     Active Substance: DOXYCYCLINE HYDROCHLORIDE
     Indication: PRODUCT USED FOR UNKNOWN INDICATION
     Dosage: 50 MG QD(DAILY)
     Route: 065
  5. LASIX [Suspect]
     Active Substance: FUROSEMIDE
     Dosage: 160 MG, Z (3 TIMES A WEEK)
     Route: 042
  6. NIFEDIPIN [Suspect]
     Active Substance: NIFEDIPINE
     Indication: PRODUCT USED FOR UNKNOWN INDICATION
     Dosage: 300 MG, BID
     Route: 065
  7. SPIOLTO RESPIMAT [Suspect]
     Active Substance: OLODATEROL HYDROCHLORIDE\TIOTROPIUM BROMIDE MONOHYDRATE
     Indication: PRODUCT USED FOR UNKNOWN INDICATION
     Dosage: UNK (I I DAILY)
     Route: 065
  8. ENOXAPARIN INJECTION [Concomitant]
     Active Substance: ENOXAPARIN
     Indication: PRODUCT USED FOR UNKNOWN INDICATION
     Dosage: UNK
  9. TADALAFIL. [Suspect]
     Active Substance: TADALAFIL
     Indication: PULMONARY ARTERIAL HYPERTENSION
     Dosage: 20 MG, QD
     Route: 065
  10. TADALAFIL. [Suspect]
     Active Substance: TADALAFIL
     Indication: SCLERODERMA
     Dosage: UNK
     Route: 065
  11. DIGOXIN. [Suspect]
     Active Substance: DIGOXIN
     Indication: PRODUCT USED FOR UNKNOWN INDICATION
     Dosage: 62.5 MCG QD (DAILY)
     Route: 065
  12. MORPHINE [Suspect]
     Active Substance: MORPHINE
     Indication: PRODUCT USED FOR UNKNOWN INDICATION
     Dosage: 2 MG (PRN)
     Route: 065
  13. CEFALEXIN [Suspect]
     Active Substance: CEPHALEXIN
     Indication: CELLULITIS
     Dosage: UNK
     Route: 065
     Dates: start: 20210430
  14. AMITRIPTYLINE [Suspect]
     Active Substance: AMITRIPTYLINE
     Indication: PRODUCT USED FOR UNKNOWN INDICATION
     Dosage: 150 MG, QD (NOCTE)
     Route: 065
  15. LASIX [Suspect]
     Active Substance: FUROSEMIDE
     Dosage: 250 MG (TWICE A DAY)
     Route: 042
  16. SPIRONOLACTONE. [Suspect]
     Active Substance: SPIRONOLACTONE
     Indication: PRODUCT USED FOR UNKNOWN INDICATION
     Dosage: 50 MG QD (DAILY)
     Route: 065
  17. SUCRALFATE. [Suspect]
     Active Substance: SUCRALFATE
     Indication: PRODUCT USED FOR UNKNOWN INDICATION
     Dosage: 1 G, BID
     Route: 065
  18. FOLIC ACID TABLET [Concomitant]
     Active Substance: FOLIC ACID
     Indication: PRODUCT USED FOR UNKNOWN INDICATION
     Dosage: UNK
  19. MYCOPHENOLATE [Suspect]
     Active Substance: MYCOPHENOLIC ACID
     Indication: PRODUCT USED FOR UNKNOWN INDICATION
     Dosage: 360 MG, BID
     Route: 065
  20. LASIX [Suspect]
     Active Substance: FUROSEMIDE
     Indication: PRODUCT USED FOR UNKNOWN INDICATION
     Dosage: 160 MG, Z (3 TIMES A WEEK)
     Route: 042
  21. LASIX [Suspect]
     Active Substance: FUROSEMIDE
     Dosage: 250 MG (IN AFTERNOON)
     Route: 042
  22. MOVICOL [Suspect]
     Active Substance: POLYETHYLENE GLYCOL 3350\POTASSIUM CHLORIDE\SODIUM BICARBONATE\SODIUM CHLORIDE
     Indication: PRODUCT USED FOR UNKNOWN INDICATION
     Dosage: UNK UNK, BID
     Route: 065
  23. LACTULOSE. [Suspect]
     Active Substance: LACTULOSE
     Indication: PRODUCT USED FOR UNKNOWN INDICATION
     Dosage: 30 MG QD
     Route: 065
  24. CEFALEXIN [Suspect]
     Active Substance: CEPHALEXIN
     Indication: CELLULITIS
  25. AMOXICILLIN. [Concomitant]
     Active Substance: AMOXICILLIN
     Indication: PRODUCT USED FOR UNKNOWN INDICATION
     Dosage: UNK
  26. ATORVASTATIN TABLET [Concomitant]
     Active Substance: ATORVASTATIN
     Indication: PRODUCT USED FOR UNKNOWN INDICATION
     Dosage: UNK
  27. ESOMEPRAZOLE TABLET [Concomitant]
     Active Substance: ESOMEPRAZOLE
     Indication: PRODUCT USED FOR UNKNOWN INDICATION
     Dosage: UNK
  28. VELETRI [Concomitant]
     Active Substance: EPOPROSTENOL
     Indication: PRODUCT USED FOR UNKNOWN INDICATION
     Dosage: UNK
  29. AMBRISENTAN [Suspect]
     Active Substance: AMBRISENTAN
     Indication: SCLERODERMA
  30. FLOLAN [Suspect]
     Active Substance: EPOPROSTENOL SODIUM
     Dosage: UNK
     Route: 065
  31. TARGIN [Suspect]
     Active Substance: NALOXONE HYDROCHLORIDE\OXYCODONE HYDROCHLORIDE
     Indication: PRODUCT USED FOR UNKNOWN INDICATION
     Dosage: UNK MG, BID (30/15)
     Route: 065
  32. LYRICA [Suspect]
     Active Substance: PREGABALIN
     Indication: PRODUCT USED FOR UNKNOWN INDICATION
     Dosage: 150 MG, BID
     Route: 065
  33. PREGABALIN CAPSULE [Concomitant]
     Active Substance: PREGABALIN
     Indication: PRODUCT USED FOR UNKNOWN INDICATION
     Dosage: UNK
  34. TEMAZEPAM TABLETS [Concomitant]
     Indication: PRODUCT USED FOR UNKNOWN INDICATION
     Dosage: UNK
  35. MELATONIN [Suspect]
     Active Substance: MELATONIN
     Indication: PRODUCT USED FOR UNKNOWN INDICATION
     Dosage: 4 MG QD(NAUTE)
     Route: 065
  36. PREDNISOLONE. [Suspect]
     Active Substance: PREDNISOLONE
     Indication: PRODUCT USED FOR UNKNOWN INDICATION
     Dosage: 5 MG QD (DAILY)
     Route: 065
  37. CLAVULANIC ACID [Concomitant]
     Active Substance: CLAVULANIC ACID
     Indication: PRODUCT USED FOR UNKNOWN INDICATION
     Dosage: UNK
  38. FLOLAN [Suspect]
     Active Substance: EPOPROSTENOL SODIUM
     Indication: PULMONARY ARTERIAL HYPERTENSION
     Dosage: 8 DF, CO, 8 NG/KG/MIN
     Route: 042
  39. HYDROCHLOROTHIAZIDE. [Suspect]
     Active Substance: HYDROCHLOROTHIAZIDE
     Indication: PRODUCT USED FOR UNKNOWN INDICATION
     Dosage: 25 MG, BID
     Route: 065
  40. NEXIUM [Suspect]
     Active Substance: ESOMEPRAZOLE MAGNESIUM
     Indication: PRODUCT USED FOR UNKNOWN INDICATION
     Dosage: 40 MG, BID
     Route: 065

REACTIONS (20)
  - Oedema [Unknown]
  - Disease progression [Unknown]
  - Cellulitis [Unknown]
  - Small intestinal obstruction [Not Recovered/Not Resolved]
  - Dyspnoea [Recovering/Resolving]
  - Dizziness exertional [Unknown]
  - Oedema peripheral [Unknown]
  - Nausea [Recovered/Resolved]
  - Productive cough [Unknown]
  - Weight decreased [Unknown]
  - Infective exacerbation of chronic obstructive airways disease [Unknown]
  - Flushing [Recovered/Resolved]
  - Cough [Unknown]
  - Pulmonary vascular resistance abnormality [Unknown]
  - Dyspnoea [Unknown]
  - Crepitations [Unknown]
  - Hospitalisation [Unknown]
  - Cardiac failure [Unknown]
  - Headache [Recovered/Resolved]
  - Weight increased [Unknown]

NARRATIVE: CASE EVENT DATE: 202012
